FAERS Safety Report 8349106-5 (Version None)
Quarter: 2012Q2

REPORT INFORMATION
  Report Type: 
  Country: None (occurrence: None)
  Receive Date: 20120510
  Receipt Date: 20120502
  Transmission Date: 20120825
  Serious: Yes (Hospitalization, Other)
  Sender: FDA-Public Use
  Company Number: US-BAYER-2011-075772

PATIENT
  Age: 25 Year
  Sex: Female
  Weight: 79.365 kg

DRUGS (5)
  1. YASMIN [Suspect]
     Indication: ACNE
  2. YAZ [Suspect]
     Indication: CONTRACEPTION
     Dosage: UNK
     Dates: start: 20080401, end: 20081104
  3. IBUPROFEN (ADVIL) [Concomitant]
     Dosage: UNK
     Dates: start: 20080814
  4. YAZ [Suspect]
     Indication: ACNE
     Dosage: UNK
     Dates: end: 20101223
  5. YASMIN [Suspect]
     Indication: CONTRACEPTION
     Dosage: UNK
     Dates: start: 20050101

REACTIONS (4)
  - PAIN [None]
  - CHOLELITHIASIS [None]
  - BILIARY COLIC [None]
  - CHOLECYSTITIS CHRONIC [None]
